FAERS Safety Report 17508869 (Version 2)
Quarter: 2020Q1

REPORT INFORMATION
  Report Type: Report from Study
  Country: US (occurrence: US)
  Receive Date: 20200306
  Receipt Date: 20200320
  Transmission Date: 20200409
  Serious: Yes (Hospitalization)
  Sender: FDA-Public Use
  Company Number: US-ENDO PHARMACEUTICALS INC-2020-001941

PATIENT
  Age: 3 Year
  Sex: Male
  Weight: 17.2 kg

DRUGS (9)
  1. METHOTREXATE SODIUM. [Suspect]
     Active Substance: METHOTREXATE SODIUM
     Indication: ACUTE LYMPHOCYTIC LEUKAEMIA
     Dosage: 13.75 MG, ONCE WEEKLY
     Route: 048
     Dates: start: 20190904, end: 20200217
  2. INCB018424 [Suspect]
     Active Substance: RUXOLITINIB
     Indication: ACUTE LYMPHOCYTIC LEUKAEMIA
     Dosage: 35 MG, BID, 14 DAYS
     Route: 048
     Dates: start: 20181008
  3. MERCAPTOPURINE. [Suspect]
     Active Substance: MERCAPTOPURINE
     Dosage: UNK UNKNOWN, UNKNOWN
     Route: 048
     Dates: start: 20200217
  4. VINCRISTINE [Suspect]
     Active Substance: VINCRISTINE
     Indication: ACUTE LYMPHOCYTIC LEUKAEMIA
     Dosage: 1 MG, SINGLE
     Route: 042
     Dates: start: 20181022
  5. METHOTREXATE. [Concomitant]
     Active Substance: METHOTREXATE
     Indication: ACUTE LYMPHOCYTIC LEUKAEMIA
     Dosage: 12 MG, ONE TIME
     Route: 037
     Dates: start: 20181008
  6. METHOTREXATE SODIUM. [Suspect]
     Active Substance: METHOTREXATE SODIUM
     Dosage: UNK UNKNOWN, UNKNOWN
     Route: 048
     Dates: start: 20200224
  7. INCB018424 [Suspect]
     Active Substance: RUXOLITINIB
     Dosage: 35 MG, BID FOR 14 DAYS
     Route: 048
     Dates: start: 20200217
  8. PREDNISONE. [Suspect]
     Active Substance: PREDNISONE
     Indication: ACUTE LYMPHOCYTIC LEUKAEMIA
     Dosage: 14.1 MG, BID 5 DAYS
     Route: 048
     Dates: start: 20190904
  9. MERCAPTOPURINE. [Suspect]
     Active Substance: MERCAPTOPURINE
     Indication: ACUTE LYMPHOCYTIC LEUKAEMIA
     Dosage: 52 MG, OD
     Route: 048
     Dates: start: 20181008, end: 20200217

REACTIONS (1)
  - Febrile neutropenia [Recovered/Resolved]

NARRATIVE: CASE EVENT DATE: 20200205
